FAERS Safety Report 6742821-6 (Version None)
Quarter: 2010Q2

REPORT INFORMATION
  Report Type: 
  Country: None (occurrence: None)
  Receive Date: 20100525
  Receipt Date: 20100510
  Transmission Date: 20101027
  Serious: Yes (Death)
  Sender: FDA-Public Use
  Company Number: LIT-10-0033

PATIENT

DRUGS (1)
  1. MEGESTROL ACETATE ORAL SUSPENSION (MGP) [Suspect]
     Dosage: ORAL
     Route: 048

REACTIONS (2)
  - BUDD-CHIARI SYNDROME [None]
  - THROMBOSIS [None]
